FAERS Safety Report 8836599 (Version 1)
Quarter: 2012Q4

REPORT INFORMATION
  Report Type: Spontaneous
  Country: GR (occurrence: None)
  Receive Date: 20121009
  Receipt Date: 20121009
  Transmission Date: 20130627
  Serious: Yes (Hospitalization)
  Sender: FDA-Public Use
  Company Number: ENTC2012-0438

PATIENT
  Age: 62 Year
  Sex: Male

DRUGS (1)
  1. STALEVO (LEVODOPA, CARBIDOPA, ENTACAPONE) [Suspect]
     Indication: PARKINSON^S DISEASE
     Dosage: (150 MG, 4 IN 1 D)
     Route: 048

REACTIONS (4)
  - Drug prescribing error [None]
  - Parkinson^s disease [None]
  - Aspiration [None]
  - Dysphagia [None]
